FAERS Safety Report 10031557 (Version 2)
Quarter: 2014Q2

REPORT INFORMATION
  Report Type: Report from Study
  Country: DE (occurrence: DE)
  Receive Date: 20140324
  Receipt Date: 20140416
  Transmission Date: 20141212
  Serious: Yes (Other)
  Sender: FDA-Public Use
  Company Number: DE-TAKEDA-2014TEU002396

PATIENT
  Age: 90 Year
  Sex: Female
  Weight: 90 kg

DRUGS (1)
  1. FIBRINOGEN, THROMBIN [Suspect]
     Indication: PROPHYLAXIS
     Dosage: 1 DF, ONCE
     Dates: start: 20140116

REACTIONS (2)
  - Groin abscess [Recovering/Resolving]
  - Seroma [Unknown]
